FAERS Safety Report 6232869-2 (Version None)
Quarter: 2009Q2

REPORT INFORMATION
  Report Type: 
  Country: None (occurrence: None)
  Receive Date: 20090617
  Receipt Date: 20090304
  Transmission Date: 20091009
  Serious: No
  Sender: FDA-Public Use
  Company Number: US-ASTRAZENECA-2009UW05953

PATIENT
  Age: 66 Year
  Sex: Female
  Weight: 68 kg

DRUGS (3)
  1. FASLODEX [Suspect]
     Indication: BREAST CANCER
     Route: 030
     Dates: start: 20080201
  2. ZOMETA [Concomitant]
  3. AROMASIN [Concomitant]

REACTIONS (3)
  - ABNORMAL FAECES [None]
  - HAIR DISORDER [None]
  - URINE ODOUR ABNORMAL [None]
